FAERS Safety Report 7229950-8 (Version None)
Quarter: 2011Q1

REPORT INFORMATION
  Report Type: 
  Country: None (occurrence: None)
  Receive Date: 20110117
  Receipt Date: 20110112
  Transmission Date: 20110831
  Serious: Yes (Hospitalization, Other)
  Sender: FDA-Public Use
  Company Number: DE-ELI_LILLY_AND_COMPANY-DE201101002657

PATIENT
  Age: 57 Year
  Sex: Male

DRUGS (3)
  1. BYETTA [Suspect]
     Indication: DIABETES MELLITUS
     Dosage: 10 UG, UNK
     Route: 058
     Dates: start: 20100717
  2. METFORMIN HCL [Concomitant]
     Dosage: 850 MG, 2/D
     Route: 048
  3. ASPIRIN [Concomitant]

REACTIONS (5)
  - NERVE INJURY [None]
  - ARTERIAL DISORDER [None]
  - PROCEDURAL PAIN [None]
  - KNEE OPERATION [None]
  - PARALYSIS [None]
